FAERS Safety Report 23189258 (Version 2)
Quarter: 2023Q4

REPORT INFORMATION
  Report Type: Spontaneous
  Country: US (occurrence: US)
  Receive Date: 20231115
  Receipt Date: 20231210
  Transmission Date: 20240110
  Serious: No
  Sender: FDA-Public Use
  Company Number: US-SA-SAC20231108000820

PATIENT
  Age: 42 Year
  Sex: Female

DRUGS (4)
  1. DUPIXENT [Suspect]
     Active Substance: DUPILUMAB
     Indication: Dermatitis atopic
     Dosage: 300 MG, QOW
     Route: 058
     Dates: start: 202310
  2. PENICILLIN [Suspect]
     Active Substance: PENICILLIN
  3. SOAP [Concomitant]
     Active Substance: SOAP
     Dosage: UNK
  4. CETAPHIL PRO ECZEMA [Concomitant]

REACTIONS (3)
  - Eczema [Unknown]
  - Fungal infection [Unknown]
  - Therapeutic response decreased [Unknown]
